FAERS Safety Report 14662110 (Version 1)
Quarter: 2018Q1

REPORT INFORMATION
  Report Type: Report from Study
  Country: None (occurrence: US)
  Receive Date: 20180321
  Receipt Date: 20180321
  Transmission Date: 20180509
  Serious: Yes (Other)
  Sender: FDA-Public Use
  Company Number: US-ABBVIE-18K-163-2289263-00

PATIENT
  Sex: Male

DRUGS (1)
  1. HUMIRA [Suspect]
     Active Substance: ADALIMUMAB
     Indication: PSORIATIC ARTHROPATHY
     Route: 058

REACTIONS (8)
  - Osteonecrosis [Recovered/Resolved]
  - Cervical cord compression [Not Recovered/Not Resolved]
  - Rheumatoid arthritis [Unknown]
  - Spinal cord compression [Not Recovered/Not Resolved]
  - Gout [Not Recovered/Not Resolved]
  - Fall [Unknown]
  - Joint injury [Recovering/Resolving]
  - Pain [Not Recovered/Not Resolved]
